FAERS Safety Report 13738796 (Version 1)
Quarter: 2017Q3

REPORT INFORMATION
  Report Type: Report from Study
  Country: US (occurrence: US)
  Receive Date: 20170710
  Receipt Date: 20170710
  Transmission Date: 20171127
  Serious: No
  Sender: FDA-Public Use
  Company Number: US-SAOL THERAPEUTICS-2017SAO00635

PATIENT
  Age: 45 Year
  Sex: Female

DRUGS (16)
  1. CLONIDINE. [Suspect]
     Active Substance: CLONIDINE
     Dosage: 299.98 ?G, \DAY
     Route: 037
     Dates: start: 20150501
  2. BUPIVACAINE. [Suspect]
     Active Substance: BUPIVACAINE
     Dosage: 26.090 MG, \DAY
     Route: 037
     Dates: start: 20150319, end: 20150501
  3. COMPOUNDED BACLOFEN [Suspect]
     Active Substance: BACLOFEN
     Dosage: 695.73 ?G, \DAY
     Route: 037
     Dates: start: 20150319, end: 20150501
  4. DILAUDID [Suspect]
     Active Substance: HYDROMORPHONE HYDROCHLORIDE
     Dosage: 3.0936 MG, \DAY
     Route: 037
     Dates: start: 20150501
  5. DILAUDID [Suspect]
     Active Substance: HYDROMORPHONE HYDROCHLORIDE
     Dosage: 2.609 MG, \DAY
     Route: 037
     Dates: start: 20150319, end: 20150501
  6. CLONIDINE. [Suspect]
     Active Substance: CLONIDINE
     Dosage: 233.72 ?G, \DAY
     Route: 037
     Dates: start: 20150319, end: 20150501
  7. DILAUDID [Suspect]
     Active Substance: HYDROMORPHONE HYDROCHLORIDE
     Dosage: 1.7529 MG, \DAY
     Route: 037
     Dates: start: 20150319, end: 20150501
  8. DILAUDID [Suspect]
     Active Substance: HYDROMORPHONE HYDROCHLORIDE
     Dosage: 2.2499 MG, \DAY
     Route: 037
     Dates: start: 20150501
  9. BUPIVACAINE. [Suspect]
     Active Substance: BUPIVACAINE
     Dosage: 30.936 MG, \DAY
     Route: 037
     Dates: start: 20150501
  10. COMPOUNDED BACLOFEN [Suspect]
     Active Substance: BACLOFEN
     Dosage: 824.95 ?G, \DAY
     Route: 037
     Dates: start: 20150501
  11. BUPIVACAINE. [Suspect]
     Active Substance: BUPIVACAINE
     Dosage: 22.499 MG, \DAY
     Route: 037
     Dates: start: 20150501
  12. CLONIDINE. [Suspect]
     Active Substance: CLONIDINE
     Dosage: 347.87 ?G, \DAY
     Route: 037
     Dates: start: 20150319, end: 20150501
  13. CLONIDINE. [Suspect]
     Active Substance: CLONIDINE
     Dosage: 412.47 ?G, \DAY
     Route: 037
     Dates: start: 20150501
  14. COMPOUNDED BACLOFEN [Suspect]
     Active Substance: BACLOFEN
     Dosage: 467.43 ?G, \DAY
     Route: 037
     Dates: start: 20150319, end: 20150501
  15. COMPOUNDED BACLOFEN [Suspect]
     Active Substance: BACLOFEN
     Dosage: 599.96 ?G, \DAY
     Route: 037
     Dates: start: 20150501
  16. BUPIVACAINE. [Suspect]
     Active Substance: BUPIVACAINE
     Dosage: 17.529 MG, \DAY
     Route: 037
     Dates: start: 20150319, end: 20150501

REACTIONS (1)
  - Dyspnoea [Recovered/Resolved]

NARRATIVE: CASE EVENT DATE: 20150605
